FAERS Safety Report 10060340 (Version 5)
Quarter: 2014Q4

REPORT INFORMATION
  Report Type: Report from Study
  Country: ES (occurrence: ES)
  Receive Date: 20140404
  Receipt Date: 20141003
  Transmission Date: 20150528
  Serious: Yes (Hospitalization, Other)
  Sender: FDA-Public Use
  Company Number: ES-009507513-1404ESP000409

PATIENT
  Age: 85 Year
  Sex: Male
  Weight: 86 kg

DRUGS (10)
  1. TAMSULOSIN HYDROCHLORIDE. [Concomitant]
     Active Substance: TAMSULOSIN HYDROCHLORIDE
     Dosage: 0.4 MG DAILY DOSE
     Route: 048
     Dates: start: 20070118, end: 20070911
  2. PLAVIX [Concomitant]
     Active Substance: CLOPIDOGREL BISULFATE
     Dosage: 75 MG, QD
     Route: 048
     Dates: start: 20061205, end: 20070911
  3. EZETIMIBE AND SIMVASTATIN [Suspect]
     Active Substance: EZETIMIBE\SIMVASTATIN
     Indication: ACUTE CORONARY SYNDROME
     Dosage: UNK
     Route: 048
     Dates: start: 20070108
  4. GLUCOBAY [Concomitant]
     Active Substance: ACARBOSE
     Dosage: 50 DAILY DOSE
     Route: 048
     Dates: start: 19940101, end: 20070911
  5. AMLODIPINE [Concomitant]
     Active Substance: AMLODIPINE BESYLATE
     Dosage: 10 MG TOTAL DAILY DOSE
     Route: 048
     Dates: start: 19940101, end: 20070911
  6. TORSEMIDE. [Concomitant]
     Active Substance: TORSEMIDE
     Dosage: 5 MG DAILY
     Route: 048
     Dates: start: 20070207, end: 20070911
  7. ENALAPRIL MALEATE. [Concomitant]
     Active Substance: ENALAPRIL MALEATE
     Dosage: 5 MG, QD
     Route: 048
     Dates: start: 19940101, end: 20070911
  8. ADIRO [Concomitant]
     Active Substance: ASPIRIN
     Dosage: 100 DAILY DOSE
     Route: 048
     Dates: start: 19940101, end: 20070911
  9. OMEPRAZOLE. [Concomitant]
     Active Substance: OMEPRAZOLE
     Dosage: 20 MG, QD
     Route: 048
     Dates: start: 19940101, end: 20070911
  10. NITROPLAST [Concomitant]
     Dosage: 15 MG DAILY; ROUTE PATCH
     Dates: start: 19940101, end: 20070911

REACTIONS (1)
  - Polymyositis [Recovered/Resolved]

NARRATIVE: CASE EVENT DATE: 20070731
